FAERS Safety Report 5461021-3 (Version None)
Quarter: 2007Q3

REPORT INFORMATION
  Report Type: 
  Country: None (occurrence: None)
  Receive Date: 20070822
  Receipt Date: 20061117
  Transmission Date: 20080115
  Serious: Yes (Other)
  Sender: FDA-Public Use
  Company Number: 2006103407

PATIENT
  Age: 83 Year
  Sex: Female
  Weight: 54.4316 kg

DRUGS (6)
  1. NORVASC [Suspect]
     Indication: HYPERTENSION
     Dosage: 10 MG (5 MG, 2 IN 1 D)
  2. ATENOLOL [Suspect]
  3. MELATONIN (MELATONIN) [Concomitant]
  4. MEVACOR [Concomitant]
  5. RED YEAST RICE (RED YEAST RICE) [Concomitant]
  6. OTHER HYPNOTICS AND SEDATIVES (OTHER HYPONOTICS AND SEDATIVES) [Concomitant]

REACTIONS (1)
  - DRUG INEFFECTIVE [None]
